FAERS Safety Report 5214664-6 (Version None)
Quarter: 2007Q1

REPORT INFORMATION
  Report Type: 
  Country: None (occurrence: None)
  Receive Date: 20070122
  Receipt Date: 20070108
  Transmission Date: 20070707
  Serious: Yes (Other)
  Sender: FDA-Public Use
  Company Number: GB-ELI_LILLY_AND_COMPANY-GB200606003260

PATIENT
  Age: 13 Year
  Sex: Male
  Weight: 66.36 kg

DRUGS (5)
  1. STRATTERA [Suspect]
     Indication: ATTENTION DEFICIT/HYPERACTIVITY DISORDER
     Dosage: 40 MG, UNK
     Route: 048
     Dates: start: 20060523, end: 20060523
  2. PARACETAMOL [Concomitant]
     Dosage: 500 MG, UNK
     Route: 048
  3. PENICILLIN [Concomitant]
     Dosage: 250 MG, UNK
     Route: 048
  4. TRIAMCINOLONE [Concomitant]
     Dosage: 55 MG, UNK
     Route: 045
  5. TRIMETHOPRIM [Concomitant]
     Dosage: 200 MG, UNK
     Route: 048

REACTIONS (11)
  - BLOOD PRESSURE INCREASED [None]
  - CONFUSIONAL STATE [None]
  - DISORIENTATION [None]
  - DIZZINESS [None]
  - FEELING ABNORMAL [None]
  - HYPERSENSITIVITY [None]
  - LIVER DISORDER [None]
  - LIVER TENDERNESS [None]
  - MYDRIASIS [None]
  - PARAESTHESIA [None]
  - TENSION HEADACHE [None]
